FAERS Safety Report 23624989 (Version 1)
Quarter: 2024Q1

REPORT INFORMATION
  Report Type: Spontaneous
  Country: US (occurrence: US)
  Receive Date: 20240313
  Receipt Date: 20240313
  Transmission Date: 20240410
  Serious: Yes (Death, Other)
  Sender: FDA-Public Use
  Company Number: US-AMNEAL-2024-AMRX-00778

PATIENT
  Sex: Male

DRUGS (1)
  1. BACLOFEN [Suspect]
     Active Substance: BACLOFEN
     Indication: Product used for unknown indication
     Dosage: 849.2 MCG/DAY
     Route: 037

REACTIONS (3)
  - Septic shock [Fatal]
  - Sepsis [Fatal]
  - Multiple organ dysfunction syndrome [Fatal]
